FAERS Safety Report 5453514-X (Version None)
Quarter: 2007Q3

REPORT INFORMATION
  Report Type: 
  Country: None (occurrence: None)
  Receive Date: 20070913
  Receipt Date: 20070906
  Transmission Date: 20080115
  Serious: Yes (Hospitalization, Disabling)
  Sender: FDA-Public Use
  Company Number: 163-21880-07050923

PATIENT
  Age: 71 Year
  Sex: Female

DRUGS (13)
  1. REVLIMID [Suspect]
     Indication: MULTIPLE MYELOMA
     Dosage: 25 MG, QD X 21 DAYS, ORAL
     Route: 048
     Dates: start: 20070302, end: 20070401
  2. DECADRON [Concomitant]
  3. TOPROL-XL [Concomitant]
  4. LOTREL [Concomitant]
  5. PREVACID [Concomitant]
  6. SYNTHROID [Concomitant]
  7. LEXAPRO (ESCITALOPRAM OXALATE) (20 MILLIGRAM) [Concomitant]
  8. PROMETHAZINE [Concomitant]
  9. MAXZIDE [Concomitant]
  10. DISLUCAN (FLUCONAZOLE) [Concomitant]
  11. COUMADIN [Concomitant]
  12. CALCIUM CARBONATE (CALCIUM CARBONATE) [Concomitant]
  13. DILAUDID [Concomitant]

REACTIONS (8)
  - ASTHENIA [None]
  - DECREASED APPETITE [None]
  - NAUSEA [None]
  - OEDEMA PERIPHERAL [None]
  - ORAL PAIN [None]
  - RENAL DISORDER [None]
  - RENAL FAILURE [None]
  - VISION BLURRED [None]
